FAERS Safety Report 8722302 (Version 2)
Quarter: 2012Q4

REPORT INFORMATION
  Report Type: 
  Country: CN (occurrence: US)
  Receive Date: 20120814
  Receipt Date: 20121024
  Transmission Date: 20130627
  Serious: No
  Sender: FDA-Public Use
  Company Number: KR-009507513-1207USA009215

PATIENT
  Age: 62 Year
  Sex: Female

DRUGS (1)
  1. TEMODAR [Suspect]
     Indication: GLIOBLASTOMA MULTIFORME

REACTIONS (2)
  - Neoplasm progression [Not Recovered/Not Resolved]
  - Glioblastoma multiforme [None]
